FAERS Safety Report 13636232 (Version 1)
Quarter: 2017Q2

REPORT INFORMATION
  Report Type: Spontaneous
  Country: US (occurrence: US)
  Receive Date: 20170531
  Receipt Date: 20170531
  Transmission Date: 20170830
  Serious: No
  Sender: FDA-Public Use
  Company Number: US-ASTELLAS-1797673

PATIENT
  Sex: Female

DRUGS (9)
  1. VICODIN [Concomitant]
     Active Substance: ACETAMINOPHEN\HYDROCODONE BITARTRATE
  2. COMPAZINE [Concomitant]
     Active Substance: PROCHLORPERAZINE MALEATE
  3. NYSTATIN. [Concomitant]
     Active Substance: NYSTATIN
  4. TYLENOL [Concomitant]
     Active Substance: ACETAMINOPHEN
  5. TARCEVA [Suspect]
     Active Substance: ERLOTINIB HYDROCHLORIDE
     Indication: BENIGN BONE NEOPLASM
     Route: 048
     Dates: start: 20160412
  6. FENTANYL. [Concomitant]
     Active Substance: FENTANYL
  7. MINOCYCLINE [Concomitant]
     Active Substance: MINOCYCLINE\MINOCYCLINE HYDROCHLORIDE
  8. TARCEVA [Suspect]
     Active Substance: ERLOTINIB HYDROCHLORIDE
     Route: 048
     Dates: start: 20160412
  9. PREDNISONE. [Concomitant]
     Active Substance: PREDNISONE

REACTIONS (8)
  - Hyperaesthesia [Unknown]
  - Onychalgia [Unknown]
  - Nail discolouration [Unknown]
  - Drug ineffective [Unknown]
  - Alopecia [Recovering/Resolving]
  - Nail disorder [Unknown]
  - Rash [Unknown]
  - Pain in extremity [Unknown]
